FAERS Safety Report 9345420 (Version 2)
Quarter: 2013Q3

REPORT INFORMATION
  Report Type: Spontaneous
  Country: IT (occurrence: IT)
  Receive Date: 20130613
  Receipt Date: 20130711
  Transmission Date: 20140515
  Serious: Yes (Other)
  Sender: FDA-Public Use
  Company Number: IT-009507513-1306ITA002523

PATIENT
  Age: 55 Year
  Sex: Female
  Weight: 61 kg

DRUGS (3)
  1. PEGINTRON [Suspect]
     Indication: CHRONIC HEPATITIS C
     Dosage: 100 MICROGRAM, QW
     Route: 058
     Dates: start: 20121029, end: 20121126
  2. PEGINTRON [Suspect]
     Indication: CHRONIC HEPATITIS C
     Dosage: 80 MICROGRAM, QW
     Route: 058
     Dates: start: 20121126, end: 20130325
  3. COPEGUS [Suspect]
     Indication: CHRONIC HEPATITIS C
     Dosage: 1000 MG, QD
     Route: 048
     Dates: start: 20121029, end: 20130325

REACTIONS (1)
  - Normochromic normocytic anaemia [Recovered/Resolved]
